FAERS Safety Report 4294877-0 (Version None)
Quarter: 2004Q1

REPORT INFORMATION
  Report Type: 
  Country: None (occurrence: None)
  Receive Date: 20040216
  Receipt Date: 20030205
  Transmission Date: 20041129
  Serious: No
  Sender: FDA-Public Use
  Company Number: US-GLAXOSMITHKLINE-A0395662A

PATIENT

DRUGS (1)
  1. LAMICTAL [Suspect]
     Indication: NEUROPATHIC PAIN
     Dosage: 200MG PER DAY
     Route: 048
     Dates: end: 20030205

REACTIONS (1)
  - RASH [None]
